FAERS Safety Report 13726865 (Version 1)
Quarter: 2017Q3

REPORT INFORMATION
  Report Type: Spontaneous
  Country: GB (occurrence: GB)
  Receive Date: 20170706
  Receipt Date: 20170706
  Transmission Date: 20171127
  Serious: Yes (Congenital Anomaly, Other)
  Sender: FDA-Public Use
  Company Number: GB-ABBVIE-17P-167-2029184-00

PATIENT
  Sex: Male

DRUGS (1)
  1. SODIUM VALPROATE [Suspect]
     Active Substance: VALPROATE SODIUM
     Indication: MATERNAL EXPOSURE TIMING UNSPECIFIED
     Route: 064

REACTIONS (17)
  - Pectus excavatum [Unknown]
  - Dysmorphism [Unknown]
  - Hypospadias [Unknown]
  - Generalised tonic-clonic seizure [Unknown]
  - Foetal anticonvulsant syndrome [Unknown]
  - Foetal exposure during pregnancy [Unknown]
  - Talipes [Unknown]
  - Prominent epicanthal folds [Unknown]
  - Congenital oral malformation [Unknown]
  - Congenital nose malformation [Unknown]
  - Lip disorder [Unknown]
  - Polydactyly [Unknown]
  - Hypertelorism of orbit [Unknown]
  - Clinodactyly [Unknown]
  - Hypertrichosis [Unknown]
  - Low set ears [Unknown]
  - Deformity thorax [Unknown]
